FAERS Safety Report 12856685 (Version 1)
Quarter: 2016Q4

REPORT INFORMATION
  Report Type: Spontaneous
  Country: US (occurrence: US)
  Receive Date: 20161018
  Receipt Date: 20161018
  Transmission Date: 20170207
  Serious: Yes (Disabling)
  Sender: FDA-Public Use
  Company Number: None

PATIENT
  Age: 77 Year
  Sex: Female
  Weight: 108.41 kg

DRUGS (9)
  1. ZANTAC [Concomitant]
     Active Substance: RANITIDINE HYDROCHLORIDE
  2. PIOGLITAZONE 15 MG TAB [Suspect]
     Active Substance: PIOGLITAZONE
     Indication: TYPE 2 DIABETES MELLITUS
     Dosage: ?          QUANTITY:/%74B;?
     Route: 048
     Dates: start: 20160811, end: 20160918
  3. INDERAL [Concomitant]
     Active Substance: PROPRANOLOL HYDROCHLORIDE
  4. XANAX [Concomitant]
     Active Substance: ALPRAZOLAM
  5. VITAMIN D [Concomitant]
     Active Substance: CHOLECALCIFEROL
  6. VITAMIN B12 [Concomitant]
     Active Substance: CYANOCOBALAMIN
  7. ALLOPURINOL. [Concomitant]
     Active Substance: ALLOPURINOL
  8. ZANTAC [Concomitant]
     Active Substance: RANITIDINE HYDROCHLORIDE
  9. LISINOPRIL. [Concomitant]
     Active Substance: LISINOPRIL

REACTIONS (8)
  - Pallor [None]
  - Pollakiuria [None]
  - Thirst [None]
  - Fatigue [None]
  - Cough [None]
  - Speech disorder [None]
  - Nausea [None]
  - Headache [None]

NARRATIVE: CASE EVENT DATE: 20160820
